FAERS Safety Report 9064966 (Version 1)
Quarter: 2013Q1

REPORT INFORMATION
  Report Type: Spontaneous
  Country: US (occurrence: US)
  Receive Date: 20130128
  Receipt Date: 20130128
  Transmission Date: 20140127
  Serious: Yes (Hospitalization)
  Sender: FDA-Public Use
  Company Number: PHEH2013US002071

PATIENT
  Sex: Female

DRUGS (9)
  1. RECLAST [Suspect]
     Indication: OSTEOPOROSIS
     Dosage: UNK
     Route: 042
  2. RECLAST [Suspect]
     Dosage: UNK
     Route: 042
  3. RECLAST [Suspect]
     Dosage: UNK
     Route: 042
  4. RECLAST [Suspect]
     Dosage: UNK
     Route: 042
  5. HUMIRA [Concomitant]
  6. PREDNISONE [Concomitant]
  7. SYNTHROID [Concomitant]
  8. LEFLUNOMIDE [Concomitant]
  9. PREVACID [Concomitant]

REACTIONS (1)
  - Gastrooesophageal reflux disease [Unknown]
